FAERS Safety Report 9958167 (Version 1)
Quarter: 2014Q1

REPORT INFORMATION
  Report Type: Report from Study
  Country: US (occurrence: US)
  Receive Date: 20140304
  Receipt Date: 20140304
  Transmission Date: 20141002
  Serious: No
  Sender: FDA-Public Use
  Company Number: US-ABBVIE-13P-163-1095152-00

PATIENT
  Age: 56 Year
  Sex: Female
  Weight: 57.66 kg

DRUGS (2)
  1. HUMIRA [Suspect]
     Indication: PSORIATIC ARTHROPATHY
     Dates: start: 201211, end: 201304
  2. MELOXICAM [Concomitant]
     Indication: PSORIATIC ARTHROPATHY

REACTIONS (4)
  - Abdominal distension [Recovered/Resolved]
  - Injection site reaction [Not Recovered/Not Resolved]
  - Urticaria [Recovered/Resolved]
  - Rash macular [Not Recovered/Not Resolved]
